FAERS Safety Report 6898210-7 (Version None)
Quarter: 2010Q3

REPORT INFORMATION
  Report Type: 
  Country: None (occurrence: None)
  Receive Date: 20100802
  Receipt Date: 20070914
  Transmission Date: 20110219
  Serious: No
  Sender: FDA-Public Use
  Company Number: US-PFIZER INC-2007077781

PATIENT
  Sex: Female
  Weight: 79.4 kg

DRUGS (7)
  1. LYRICA [Suspect]
     Indication: PAIN
     Route: 048
     Dates: start: 20070914
  2. DIAZEPAM [Concomitant]
  3. TRAMADOL HYDROCHLORIDE [Concomitant]
  4. SULAR [Concomitant]
  5. HYDROCHLOROTHIAZIDE [Concomitant]
  6. OTHER ANTIPRURITICS [Concomitant]
  7. ADVIL LIQUI-GELS [Concomitant]

REACTIONS (2)
  - FEELING DRUNK [None]
  - SOMNOLENCE [None]
